FAERS Safety Report 21688533 (Version 5)
Quarter: 2023Q1

REPORT INFORMATION
  Report Type: Spontaneous
  Country: US (occurrence: US)
  Receive Date: 20221206
  Receipt Date: 20230208
  Transmission Date: 20230418
  Serious: No
  Sender: FDA-Public Use
  Company Number: US-PFIZER INC-202201282723

PATIENT
  Age: 73 Year
  Sex: Female
  Weight: 106.59 kg

DRUGS (16)
  1. VFEND [Suspect]
     Active Substance: VORICONAZOLE
     Indication: Bronchopulmonary aspergillosis
     Dosage: 300 MG, 2X/DAY, (200 MG AND 50 MG TABLETS TWICE DAILY)
     Route: 048
     Dates: start: 20221129, end: 20221213
  2. VFEND [Suspect]
     Active Substance: VORICONAZOLE
     Dosage: 300 MG, 2X/DAY (TWO 50MG TABLETS AND ONE 200MG TABLET)
     Route: 048
     Dates: start: 20221129, end: 20221213
  3. ELIQUIS [Concomitant]
     Active Substance: APIXABAN
     Indication: Anticoagulant therapy
     Dosage: 5 MG, 2X/DAY
     Route: 048
  4. METOPROLOL [Concomitant]
     Active Substance: METOPROLOL
     Indication: Heart rate
     Dosage: 25 MG, 2X/DAY
     Route: 048
  5. SPIRONOLACTONE [Concomitant]
     Active Substance: SPIRONOLACTONE
     Indication: Polyuria
     Dosage: 12.5 MG, DAILY
     Route: 048
  6. TORSEMIDE [Concomitant]
     Active Substance: TORSEMIDE
     Indication: Polyuria
     Dosage: 10 MG, 3X/DAY
     Route: 048
  7. ALPHA LIPOIC ACID [Concomitant]
     Active Substance: .ALPHA.-LIPOIC ACID
     Dosage: UNK
  8. CITRIC ACID [Concomitant]
     Active Substance: CITRIC ACID MONOHYDRATE
     Dosage: UNK
  9. VITAMIN D3 [Concomitant]
     Active Substance: CHOLECALCIFEROL
     Dosage: UNK
  10. ACETAMINOPHEN [Concomitant]
     Active Substance: ACETAMINOPHEN
     Indication: Arthritis
     Dosage: 500 MG, 3X/DAY (1000MG THREE TIMES A DAY BY MOUTH )
     Dates: start: 2007
  11. ZYRTEC [Concomitant]
     Active Substance: CETIRIZINE HYDROCHLORIDE
     Dosage: UNK, AS NEEDED
  12. IMODIUM [Concomitant]
     Active Substance: LOPERAMIDE HYDROCHLORIDE
     Indication: Diarrhoea
     Dosage: UNK, AS NEEDED
  13. MELATONIN [MELATONIN;PYRIDOXINE HYDROCHLORIDE] [Concomitant]
     Dosage: UNK, AS NEEDED, AT NIGHT
  14. DEXTROMETHORPHAN HYDROBROMIDE [Concomitant]
     Active Substance: DEXTROMETHORPHAN HYDROBROMIDE
     Indication: Nasopharyngitis
     Dosage: UNK, AS NEEDED
  15. LACTASE [Concomitant]
     Active Substance: LACTASE
     Dosage: UNK
  16. ATORVASTATIN [Concomitant]
     Active Substance: ATORVASTATIN
     Indication: Blood cholesterol
     Dosage: 20 MG, 1X/DAY
     Route: 048

REACTIONS (19)
  - Body height decreased [Unknown]
  - Photophobia [Unknown]
  - Mydriasis [Unknown]
  - Xanthopsia [Unknown]
  - Dyschromatopsia [Unknown]
  - Visual field defect [Unknown]
  - Vitreous floaters [Unknown]
  - Insomnia [Unknown]
  - Faeces soft [Not Recovered/Not Resolved]
  - Constipation [Not Recovered/Not Resolved]
  - Fatigue [Not Recovered/Not Resolved]
  - Pain [Not Recovered/Not Resolved]
  - Diarrhoea [Unknown]
  - Faeces hard [Unknown]
  - Arthralgia [Unknown]
  - Visual impairment [Unknown]
  - Drug level increased [Unknown]
  - Off label use [Unknown]
  - Contraindicated product prescribed [Unknown]

NARRATIVE: CASE EVENT DATE: 20220101
